FAERS Safety Report 5954516-7 (Version None)
Quarter: 2008Q4

REPORT INFORMATION
  Report Type: 
  Country: None (occurrence: None)
  Receive Date: 20081112
  Receipt Date: 20081103
  Transmission Date: 20090506
  Serious: Yes (Hospitalization)
  Sender: FDA-Public Use
  Company Number: ADE2008-0370

PATIENT
  Age: 6 Year
  Sex: Male

DRUGS (2)
  1. SERTRALINE [Suspect]
  2. DEXTROMETHORPHAN HYDROBROMIDE [Suspect]
     Dosage: ~40MG/KG X 1 - PO
     Route: 048

REACTIONS (13)
  - BLOOD PRESSURE INCREASED [None]
  - BODY TEMPERATURE INCREASED [None]
  - CONFUSIONAL STATE [None]
  - DRUG SCREEN POSITIVE [None]
  - HEART RATE INCREASED [None]
  - HYPERHIDROSIS [None]
  - INCORRECT DOSE ADMINISTERED [None]
  - IRRITABILITY [None]
  - LETHARGY [None]
  - MUSCLE RIGIDITY [None]
  - MYDRIASIS [None]
  - MYOCLONUS [None]
  - SKIN WARM [None]
